FAERS Safety Report 5928261-8 (Version None)
Quarter: 2008Q4

REPORT INFORMATION
  Report Type: 
  Country: None (occurrence: None)
  Receive Date: 20081023
  Receipt Date: 20081016
  Transmission Date: 20090506
  Serious: Yes (Other)
  Sender: FDA-Public Use
  Company Number: US-ASTRAZENECA-2008UW22953

PATIENT
  Age: 59 Year
  Sex: Female

DRUGS (4)
  1. ARIMIDEX [Suspect]
     Route: 048
     Dates: start: 20071001
  2. HYDROCHLOROTHIAZIDE [Concomitant]
  3. LOSARTAN [Concomitant]
     Dosage: 25 MG
  4. ALENDRONATE SODIUM [Concomitant]
     Indication: RESORPTION BONE INCREASED

REACTIONS (1)
  - MUSCLE ATROPHY [None]
